FAERS Safety Report 8354983-8 (Version None)
Quarter: 2012Q2

REPORT INFORMATION
  Report Type: 
  Country: None (occurrence: None)
  Receive Date: 20120511
  Receipt Date: 20120504
  Transmission Date: 20120825
  Serious: Yes (Hospitalization)
  Sender: FDA-Public Use
  Company Number: US-VERTEX PHARMACEUTICALS INC.-AE-2012-006415

PATIENT
  Age: 52 Year
  Sex: Female

DRUGS (3)
  1. INCIVEK [Suspect]
     Indication: HEPATITIS C
  2. PEGASYS [Concomitant]
     Indication: HEPATITIS C
  3. RIBAVIRIN [Concomitant]
     Indication: HEPATITIS C

REACTIONS (2)
  - INFECTION [None]
  - PANCYTOPENIA [None]
